FAERS Safety Report 10916822 (Version 1)
Quarter: 2015Q1

REPORT INFORMATION
  Report Type: Spontaneous
  Country: US (occurrence: None)
  Receive Date: 20150312
  Receipt Date: 20150312
  Transmission Date: 20150721
  Serious: No
  Sender: FDA-Public Use
  Company Number: None

PATIENT
  Age: 43 Year

DRUGS (1)
  1. DOXYCYCLINE 100MG WATSON LABS [Suspect]
     Active Substance: DOXYCYCLINE
     Indication: ACNE
     Dosage: 1 CAPSULE TWICE DAILY TAKEN BY MOUTH
     Route: 048
     Dates: start: 20150308, end: 20150311

REACTIONS (1)
  - Back pain [None]

NARRATIVE: CASE EVENT DATE: 20150309
